FAERS Safety Report 4853314-5 (Version None)
Quarter: 2005Q4

REPORT INFORMATION
  Report Type: 
  Country: None (occurrence: None)
  Receive Date: 20051214
  Receipt Date: 20051111
  Transmission Date: 20060501
  Serious: Yes (Other)
  Sender: FDA-Public Use
  Company Number: JP-JPN-A20052734

PATIENT
  Age: 65 Year
  Sex: Male
  Weight: 55 kg

DRUGS (9)
  1. ZOVIRAX [Suspect]
     Indication: HERPES ZOSTER
     Dosage: 400MG PER DAY
     Route: 048
     Dates: start: 20051107, end: 20051110
  2. VALTREX [Suspect]
     Indication: HERPES ZOSTER
     Dosage: 500MG PER DAY
     Route: 048
     Dates: start: 20051108, end: 20051108
  3. PANALDINE [Concomitant]
     Indication: MYOCARDIAL INFARCTION
     Dosage: 200MG PER DAY
     Route: 048
  4. CALTAN [Concomitant]
     Dosage: 1.2G PER DAY
     Route: 048
  5. SELOKEN [Concomitant]
     Indication: HYPERTENSION
     Dosage: 20MG PER DAY
     Route: 048
  6. ALTAT [Concomitant]
     Dosage: 37.5MG PER DAY
     Route: 048
  7. SIGMART [Concomitant]
     Indication: MYOCARDIAL INFARCTION
     Dosage: 15MG PER DAY
     Route: 048
  8. HERBESSER [Concomitant]
  9. CHLORAMPHENICOL [Concomitant]

REACTIONS (4)
  - CONFUSIONAL STATE [None]
  - DIZZINESS [None]
  - HALLUCINATION [None]
  - NERVOUS SYSTEM DISORDER [None]
